FAERS Safety Report 24317369 (Version 1)
Quarter: 2024Q3

REPORT INFORMATION
  Report Type: Spontaneous
  Country: US (occurrence: None)
  Receive Date: 20240913
  Receipt Date: 20240913
  Transmission Date: 20241017
  Serious: Yes (Other)
  Sender: Public
  Company Number: None

PATIENT
  Age: 26 Year
  Sex: Female

DRUGS (1)
  1. XDEMVY [Suspect]
     Active Substance: LOTILANER
     Indication: Blepharitis
     Dosage: 1 DROP BID OPHTHALMIC
     Route: 047

REACTIONS (4)
  - Ocular hyperaemia [None]
  - Eye swelling [None]
  - Chalazion [None]
  - Therapy cessation [None]
